FAERS Safety Report 5293939-9 (Version None)
Quarter: 2007Q2

REPORT INFORMATION
  Report Type: 
  Country: None (occurrence: None)
  Receive Date: 20070411
  Receipt Date: 20070330
  Transmission Date: 20071010
  Serious: Yes (Hospitalization, Other)
  Sender: FDA-Public Use
  Company Number: US-PFIZER INC-2007026869

PATIENT
  Sex: Female
  Weight: 70.3 kg

DRUGS (2)
  1. CHANTIX [Suspect]
     Indication: SMOKING CESSATION THERAPY
  2. ANTIDEPRESSANTS [Concomitant]

REACTIONS (14)
  - BLOOD URINE PRESENT [None]
  - CONSTIPATION [None]
  - EATING DISORDER [None]
  - FLATULENCE [None]
  - FUNGAL INFECTION [None]
  - GASTRITIS [None]
  - HAEMATOCHEZIA [None]
  - HERNIA [None]
  - HYPOKINESIA [None]
  - IMPAIRED WORK ABILITY [None]
  - NAUSEA [None]
  - NEPHROLITHIASIS [None]
  - VOMITING [None]
  - WEIGHT DECREASED [None]
